FAERS Safety Report 26035925 (Version 1)
Quarter: 2025Q4

REPORT INFORMATION
  Report Type: Report from Study
  Country: US (occurrence: US)
  Receive Date: 20251112
  Receipt Date: 20251112
  Transmission Date: 20260117
  Serious: Yes (Other)
  Sender: MALLINCKRODT
  Company Number: US-MALLINCKRODT-MNK202506934

PATIENT
  Sex: Female

DRUGS (1)
  1. CORTICOTROPIN [Suspect]
     Active Substance: CORTICOTROPIN
     Indication: Psoriatic arthropathy
     Dosage: 80 UNITS

REACTIONS (5)
  - Psoriatic arthropathy [Unknown]
  - Hunger [Unknown]
  - Hyperhidrosis [Unknown]
  - Euphoric mood [Unknown]
  - Inappropriate schedule of product administration [Unknown]
